FAERS Safety Report 14021240 (Version 1)
Quarter: 2017Q3

REPORT INFORMATION
  Report Type: Spontaneous
  Country: US (occurrence: US)
  Receive Date: 20170928
  Receipt Date: 20170928
  Transmission Date: 20171128
  Serious: Yes (Hospitalization)
  Sender: FDA-Public Use
  Company Number: US-TEVA-810610USA

PATIENT
  Age: 75 Year
  Sex: Male

DRUGS (9)
  1. TORASEMIDE [Suspect]
     Active Substance: TORSEMIDE
     Route: 065
  2. PANTOPRAZOLE [Concomitant]
     Active Substance: PANTOPRAZOLE
  3. SIMVASTATIN. [Concomitant]
     Active Substance: SIMVASTATIN
  4. MINOXIDIL. [Concomitant]
     Active Substance: MINOXIDIL
  5. LISINOPRIL. [Concomitant]
     Active Substance: LISINOPRIL
  6. NITROGLYCERIN. [Concomitant]
     Active Substance: NITROGLYCERIN
  7. SAMSCA [Suspect]
     Active Substance: TOLVAPTAN
     Indication: HYPONATRAEMIA
     Dosage: 15 MILLIGRAM DAILY;
     Dates: start: 201707
  8. ATENOLOL. [Concomitant]
     Active Substance: ATENOLOL
  9. FLUPHENAZINE [Concomitant]
     Active Substance: FLUPHENAZINE

REACTIONS (13)
  - Dysarthria [Unknown]
  - Anal haemorrhage [Not Recovered/Not Resolved]
  - Inappropriate schedule of drug administration [Unknown]
  - Decreased appetite [Not Recovered/Not Resolved]
  - Hypertension [Unknown]
  - Polyuria [Unknown]
  - Incorrect drug administration duration [Unknown]
  - Asthenia [Unknown]
  - Lethargy [Unknown]
  - Amnesia [Unknown]
  - Weight decreased [Unknown]
  - Drug dose omission [Unknown]
  - Body temperature decreased [Unknown]

NARRATIVE: CASE EVENT DATE: 201707
